FAERS Safety Report 8529937-9 (Version None)
Quarter: 2012Q3

REPORT INFORMATION
  Report Type: 
  Country: None (occurrence: None)
  Receive Date: 20120723
  Receipt Date: 20120713
  Transmission Date: 20120928
  Serious: Yes (Hospitalization, Other)
  Sender: FDA-Public Use
  Company Number: US-BAYER-2012-040227

PATIENT
  Age: 36 Year
  Sex: Female
  Weight: 91.61 kg

DRUGS (14)
  1. DROSPIRENONE AND ETHINYL ESTRADIOL [Suspect]
     Indication: MENSTRUAL CYCLE MANAGEMENT
     Dosage: UNK
     Dates: start: 20090820, end: 20100430
  2. ASCORBIC ACID [Concomitant]
  3. PREDNISONE [Concomitant]
     Dosage: 10 MG, UNK
     Route: 048
     Dates: start: 20100305
  4. CLARITIN [Concomitant]
     Dosage: UNK
     Route: 048
     Dates: start: 20100430
  5. WELLBUTRIN XL [Concomitant]
     Indication: DEPRESSION
     Dosage: UNK
     Dates: start: 20071201, end: 20091001
  6. FLUOXETINE HCL [Concomitant]
     Indication: DEPRESSION
     Dosage: UNK
     Dates: start: 20040401
  7. PROZAC [Concomitant]
  8. NSAID'S [Concomitant]
  9. YASMIN [Suspect]
     Indication: MENSTRUAL CYCLE MANAGEMENT
     Dosage: UNK
     Dates: start: 20091101
  10. LEVAQUIN [Concomitant]
     Dosage: 750 MG, UNK
     Route: 048
     Dates: start: 20100305
  11. PROVENTIL [Concomitant]
     Dosage: INHALED
     Dates: start: 20100305
  12. TOPAMAX [Concomitant]
     Indication: MIGRAINE
     Dosage: UNK
  13. TOPIRAMATE [Concomitant]
  14. ZYRTEC [Concomitant]

REACTIONS (3)
  - INJURY [None]
  - PULMONARY EMBOLISM [None]
  - DEEP VEIN THROMBOSIS [None]
